FAERS Safety Report 6123137-8 (Version None)
Quarter: 2009Q1

REPORT INFORMATION
  Report Type: 
  Country: None (occurrence: None)
  Receive Date: 20090318
  Receipt Date: 20090310
  Transmission Date: 20090719
  Serious: Yes (Death, Hospitalization, Other)
  Sender: FDA-Public Use
  Company Number: GB-ELI_LILLY_AND_COMPANY-GB200902000961

PATIENT
  Age: 68 Year
  Sex: Female

DRUGS (5)
  1. HUMALOG [Suspect]
     Indication: TYPE 2 DIABETES MELLITUS
     Dosage: UNK, UNKNOWN
     Route: 065
  2. LEVEMIR [Concomitant]
     Dosage: UNK, UNKNOWN
     Route: 065
  3. LANTUS [Concomitant]
     Dosage: UNK, UNKNOWN
     Route: 065
  4. METFORMIN HCL [Concomitant]
     Dosage: UNK, UNKNOWN
     Route: 065
  5. MYCOPHENOLATE MOFETIL [Concomitant]
     Dosage: 1000 MG, 2/D
     Route: 065

REACTIONS (6)
  - BACTERIAL SEPSIS [None]
  - CARDIAC DEATH [None]
  - DIABETES MELLITUS INADEQUATE CONTROL [None]
  - INSULIN RESISTANCE [None]
  - MYOCARDIAL INFARCTION [None]
  - RETINOPATHY [None]
